FAERS Safety Report 15008176 (Version 2)
Quarter: 2018Q2

REPORT INFORMATION
  Report Type: Spontaneous
  Country: TW (occurrence: TW)
  Receive Date: 20180613
  Receipt Date: 20180625
  Transmission Date: 20180711
  Serious: Yes (Hospitalization, Other)
  Sender: FDA-Public Use
  Company Number: TW-MYLANLABS-2018M1039118

PATIENT
  Age: 26 Year
  Sex: Male

DRUGS (4)
  1. FLUDIAZEPAM [Suspect]
     Active Substance: FLUDIAZEPAM
     Indication: PRODUCT USED FOR UNKNOWN INDICATION
     Dosage: 6.25 MG, TOTAL
     Route: 048
  2. VALPROIC ACID. [Suspect]
     Active Substance: VALPROIC ACID
     Indication: PRODUCT USED FOR UNKNOWN INDICATION
     Dosage: 25000 MG, TOTAL
     Route: 048
  3. ESTAZOLAM. [Suspect]
     Active Substance: ESTAZOLAM
     Indication: PRODUCT USED FOR UNKNOWN INDICATION
     Dosage: 100 MG, TOTAL
     Route: 048
  4. TRAZODONE [Suspect]
     Active Substance: TRAZODONE HYDROCHLORIDE
     Indication: PRODUCT USED FOR UNKNOWN INDICATION
     Dosage: 1250 MG, TOTAL
     Route: 048

REACTIONS (10)
  - Intentional overdose [Recovered/Resolved]
  - Depressed level of consciousness [Recovered/Resolved]
  - Suicide attempt [Recovered/Resolved]
  - Dyspnoea [Recovered/Resolved]
  - Drug level increased [Recovered/Resolved]
  - Generalised tonic-clonic seizure [Recovered/Resolved]
  - Toxicity to various agents [Recovered/Resolved]
  - Acute respiratory failure [Unknown]
  - Hyperammonaemia [Unknown]
  - Coma [Recovered/Resolved]
